FAERS Safety Report 25228289 (Version 2)
Quarter: 2025Q3

REPORT INFORMATION
  Report Type: Spontaneous
  Country: US (occurrence: US)
  Receive Date: 20250423
  Receipt Date: 20250910
  Transmission Date: 20251021
  Serious: No
  Sender: SANOFI AVENTIS
  Company Number: US-SA-2025SA114570

PATIENT
  Age: 74 Year
  Sex: Male

DRUGS (19)
  1. DUPIXENT [Suspect]
     Active Substance: DUPILUMAB
     Indication: Lung disorder
     Dosage: 300 MG, QOW
     Route: 058
  2. DUPIXENT [Suspect]
     Active Substance: DUPILUMAB
     Indication: Asthma
  3. ABILIFY MYCITE [Concomitant]
     Active Substance: ARIPIPRAZOLE
  4. ATORVASTATIN [Concomitant]
     Active Substance: ATORVASTATIN
  5. AUSTEDO [Concomitant]
     Active Substance: DEUTETRABENAZINE
  6. BUSPIRONE HCL [Concomitant]
     Active Substance: BUSPIRONE HYDROCHLORIDE
  7. CHLORTHALIDONE [Concomitant]
     Active Substance: CHLORTHALIDONE
  8. DILTIAZEM HYDROCHLORIDE [Concomitant]
     Active Substance: DILTIAZEM HYDROCHLORIDE
  9. FENTANYL [Concomitant]
     Active Substance: FENTANYL
  10. GABAPENTIN [Concomitant]
     Active Substance: GABAPENTIN
  11. HYDROCODONE [Concomitant]
     Active Substance: HYDROCODONE
  12. HYDROXYZINE [Concomitant]
     Active Substance: HYDROXYZINE HYDROCHLORIDE
  13. IPRATROPIUM [Concomitant]
     Active Substance: IPRATROPIUM
  14. LAMICTAL [Concomitant]
     Active Substance: LAMOTRIGINE
  15. MONTELUKAST [Concomitant]
     Active Substance: MONTELUKAST
  16. SPIRIVA RESPIMAT [Concomitant]
     Active Substance: TIOTROPIUM BROMIDE
  17. TOPIRAMATE [Concomitant]
     Active Substance: TOPIRAMATE
  18. TRAZODONE HCL [Concomitant]
     Active Substance: TRAZODONE HYDROCHLORIDE
  19. WELLBUTRIN [Concomitant]
     Active Substance: BUPROPION HYDROCHLORIDE

REACTIONS (6)
  - Dyspnoea [Not Recovered/Not Resolved]
  - Sleep disorder due to a general medical condition [Not Recovered/Not Resolved]
  - Impaired quality of life [Not Recovered/Not Resolved]
  - Depression [Not Recovered/Not Resolved]
  - Product use in unapproved indication [Unknown]
  - Incorrect dose administered [Unknown]

NARRATIVE: CASE EVENT DATE: 20250501
